FAERS Safety Report 8188689-5 (Version None)
Quarter: 2012Q1

REPORT INFORMATION
  Report Type: 
  Country: None (occurrence: None)
  Receive Date: 20120306
  Receipt Date: 20120223
  Transmission Date: 20120608
  Serious: Yes (Other)
  Sender: FDA-Public Use
  Company Number: CA-ELI_LILLY_AND_COMPANY-CA201201003863

PATIENT
  Age: 62 Year
  Sex: Female

DRUGS (11)
  1. FORTEO [Suspect]
     Indication: OSTEOPOROSIS
     Dosage: 20 UG, QD
     Route: 058
     Dates: start: 20111104
  2. ASPIRIN [Concomitant]
  3. CALCIUM [Concomitant]
  4. PRISTIQ [Concomitant]
  5. GLUCOSAMINE CHONDROITIN [Concomitant]
  6. SYNTHROID [Concomitant]
  7. FORTEO [Suspect]
     Dosage: 20 UG, QD
     Route: 058
     Dates: start: 20111104
  8. NAPROSYN [Concomitant]
  9. VITAMIN D [Concomitant]
  10. PANTOPRAZOLE SODIUM [Concomitant]
  11. LOVAZA [Concomitant]

REACTIONS (3)
  - FRACTURE [None]
  - ARTHRALGIA [None]
  - HIP FRACTURE [None]
